FAERS Safety Report 8287784-X (Version None)
Quarter: 2012Q2

REPORT INFORMATION
  Report Type: 
  Country: None (occurrence: None)
  Receive Date: 20120411
  Receipt Date: 20120411
  Transmission Date: 20120825
  Serious: No
  Sender: FDA-Public Use
  Company Number: None

PATIENT

DRUGS (3)
  1. THORAZINE [Suspect]
  2. PAXIL [Suspect]
  3. REMERON [Suspect]

REACTIONS (1)
  - CARDIAC DISORDER [None]
